FAERS Safety Report 7742060-6 (Version None)
Quarter: 2011Q3

REPORT INFORMATION
  Report Type: 
  Country: None (occurrence: None)
  Receive Date: 20110912
  Receipt Date: 20110905
  Transmission Date: 20111222
  Serious: Yes (Hospitalization)
  Sender: FDA-Public Use
  Company Number: PHHY2009JP26369

PATIENT
  Sex: Female

DRUGS (6)
  1. AMARYL [Concomitant]
     Dosage: 3 MG, UNK
     Route: 048
     Dates: start: 20080921, end: 20081009
  2. EXJADE [Suspect]
     Indication: MYELODYSPLASTIC SYNDROME
     Dosage: 1000 MG, UNK
     Route: 048
     Dates: start: 20080911, end: 20080920
  3. EXJADE [Suspect]
     Indication: IRON OVERLOAD
  4. LASIX [Concomitant]
     Dosage: 20 MG, UNK
     Route: 048
     Dates: start: 20080911, end: 20080921
  5. BASEN [Concomitant]
     Dosage: 0.6 MG, UNK
     Route: 048
     Dates: start: 20080926, end: 20081009
  6. PRIMOBOLAN-DEPOT INJ [Concomitant]
     Indication: MYELODYSPLASTIC SYNDROME
     Dosage: 15 MG, UNK
     Route: 048
     Dates: start: 20080911, end: 20080921

REACTIONS (3)
  - INFECTION [None]
  - RASH [None]
  - PYREXIA [None]
